FAERS Safety Report 25544668 (Version 1)
Quarter: 2025Q3

REPORT INFORMATION
  Report Type: Spontaneous
  Country: US (occurrence: None)
  Receive Date: 20250711
  Receipt Date: 20250711
  Transmission Date: 20251020
  Serious: Yes (unspecified)
  Sender: FDA-CTU
  Company Number: None

PATIENT
  Age: 55 Year
  Sex: Female
  Weight: 107.1 kg

DRUGS (1)
  1. REMICADE [Suspect]
     Active Substance: INFLIXIMAB
     Indication: Rheumatoid arthritis
     Route: 041
     Dates: start: 20250620, end: 20250710

REACTIONS (8)
  - Dizziness [None]
  - Taste disorder [None]
  - Feeling abnormal [None]
  - Infusion related reaction [None]
  - Syncope [None]
  - Blood pressure increased [None]
  - Palpitations [None]
  - Throat irritation [None]

NARRATIVE: CASE EVENT DATE: 20250710
